FAERS Safety Report 8128016-2 (Version None)
Quarter: 2011Q4

REPORT INFORMATION
  Report Type: 
  Country: None (occurrence: None)
  Receive Date: 20111230
  Receipt Date: 20111005
  Transmission Date: 20120403
  Serious: Yes (Other)
  Sender: FDA-Public Use
  Company Number: 303991USA

PATIENT
  Age: 43 Year
  Sex: Female

DRUGS (3)
  1. VENLAFAXINE [Suspect]
     Indication: PANIC DISORDER
     Dosage: 150MG AM, 75MG AFTERNOON, ORAL
     Route: 048
  2. VENLAFAXINE [Suspect]
     Indication: POST-TRAUMATIC STRESS DISORDER
     Dosage: 150MG AM, 75MG AFTERNOON, ORAL
     Route: 048
  3. PANTOPRAZOLE [Concomitant]

REACTIONS (20)
  - VISUAL IMPAIRMENT [None]
  - ABNORMAL DREAMS [None]
  - MEMORY IMPAIRMENT [None]
  - GASTROOESOPHAGEAL REFLUX DISEASE [None]
  - HEART RATE [None]
  - CONFUSIONAL STATE [None]
  - HEART RATE DECREASED [None]
  - SUICIDAL IDEATION [None]
  - MUSCLE SPASMS [None]
  - ANXIETY [None]
  - DISCOMFORT [None]
  - MUSCULAR WEAKNESS [None]
  - THINKING ABNORMAL [None]
  - HEADACHE [None]
  - INSOMNIA [None]
  - WITHDRAWAL SYNDROME [None]
  - MUSCLE TWITCHING [None]
  - ASTHENIA [None]
  - BURNING SENSATION [None]
  - DEPRESSION [None]
